FAERS Safety Report 5671254-9 (Version None)
Quarter: 2008Q1

REPORT INFORMATION
  Report Type: 
  Country: None (occurrence: None)
  Receive Date: 20080318
  Receipt Date: 20080304
  Transmission Date: 20080703
  Serious: Yes (Life-Threatening, Other)
  Sender: FDA-Public Use
  Company Number: FR-GENENTECH-255988

PATIENT
  Age: 44 Year
  Sex: Male
  Weight: 78 kg

DRUGS (4)
  1. AVASTIN [Suspect]
     Indication: LUNG ADENOCARCINOMA
     Dosage: 15 MG/KG, Q3W
     Route: 042
     Dates: start: 20070412
  2. AVASTIN [Interacting]
     Dosage: 10 MG/KG, Q15D
     Route: 042
     Dates: start: 20080111
  3. ERLOTINIB [Interacting]
     Indication: LUNG ADENOCARCINOMA
     Dosage: 150 MG, QD
     Route: 048
     Dates: start: 20080111
  4. GEMZAR [Concomitant]
     Indication: DRUG USE FOR UNKNOWN INDICATION

REACTIONS (1)
  - PARALYSIS [None]
